FAERS Safety Report 26204579 (Version 1)
Quarter: 2025Q4

REPORT INFORMATION
  Report Type: Other
  Country: CN (occurrence: CN)
  Receive Date: 20251227
  Receipt Date: 20251227
  Transmission Date: 20260118
  Serious: Yes (Death, Hospitalization)
  Sender: ANI
  Company Number: CN-ANIPHARMA-035615

PATIENT
  Age: 44 Year
  Sex: Female

DRUGS (5)
  1. CLARITHROMYCIN [Suspect]
     Active Substance: CLARITHROMYCIN
     Indication: Mycobacterium fortuitum infection
  2. RIFAMPIN [Concomitant]
     Active Substance: RIFAMPIN
     Indication: Mycobacterium fortuitum infection
     Route: 048
  3. ISONIAZID [Concomitant]
     Active Substance: ISONIAZID
     Indication: Mycobacterium fortuitum infection
  4. PYRAZINAMIDE [Concomitant]
     Active Substance: PYRAZINAMIDE
     Indication: Mycobacterium fortuitum infection
  5. ETHAMBUTOL [Concomitant]
     Active Substance: ETHAMBUTOL HYDROCHLORIDE
     Indication: Mycobacterium fortuitum infection

REACTIONS (2)
  - Drug ineffective [Fatal]
  - Drug resistance [Fatal]
